FAERS Safety Report 22397986 (Version 1)
Quarter: 2023Q2

REPORT INFORMATION
  Report Type: Spontaneous
  Country: ES (occurrence: ES)
  Receive Date: 20230602
  Receipt Date: 20230602
  Transmission Date: 20230721
  Serious: Yes (Other)
  Sender: FDA-Public Use
  Company Number: ES-FDC-2023ESLIT00392

PATIENT
  Sex: Male

DRUGS (4)
  1. CIPROFLOXACIN [Suspect]
     Active Substance: CIPROFLOXACIN
     Indication: Arthritis bacterial
     Route: 065
  2. CEFTAZIDIME [Concomitant]
     Active Substance: CEFTAZIDIME
     Route: 065
  3. PEMBROLIZUMAB [Concomitant]
     Active Substance: PEMBROLIZUMAB
     Route: 065
  4. PEMBROLIZUMAB [Concomitant]
     Active Substance: PEMBROLIZUMAB
     Route: 065

REACTIONS (2)
  - Tubulointerstitial nephritis [Recovering/Resolving]
  - Product use in unapproved indication [Unknown]
